FAERS Safety Report 4637577-7 (Version None)
Quarter: 2005Q2

REPORT INFORMATION
  Report Type: 
  Country: None (occurrence: None)
  Receive Date: 20050418
  Receipt Date: 20050413
  Transmission Date: 20051028
  Serious: Yes (Life-Threatening, Hospitalization)
  Sender: FDA-Public Use
  Company Number: US-BOEHRINGER INGELHEIM PHARMACEUTICALS, INC.-2005-BP-06141RO

PATIENT
  Sex: Male
  Weight: 11.2 kg

DRUGS (2)
  1. PROPRANOLOL HCL ORAL SOLUTION, 20MG/5ML [Suspect]
     Indication: WOLFF-PARKINSON-WHITE SYNDROME
     Dosage: 1.4ML (5.6MG) QID
     Route: 048
     Dates: start: 20031201
  2. AMIODARONE HYDROCHLORIDE 40MG/ML [Concomitant]
     Indication: WOLFF-PARKINSON-WHITE SYNDROME
     Route: 048

REACTIONS (3)
  - COMA [None]
  - CONVULSION [None]
  - HYPOGLYCAEMIA [None]
